FAERS Safety Report 13152375 (Version 1)
Quarter: 2017Q1

REPORT INFORMATION
  Report Type: Report from Study
  Country: None (occurrence: ES)
  Receive Date: 20170125
  Receipt Date: 20170125
  Transmission Date: 20170428
  Serious: Yes (Hospitalization)
  Sender: FDA-Public Use
  Company Number: ES-ABBVIE-17P-144-1845849-00

PATIENT
  Age: 84 Year
  Sex: Male

DRUGS (2)
  1. EXVIERA [Suspect]
     Active Substance: DASABUVIR
     Indication: HEPATITIS C
     Route: 048
     Dates: start: 20160421, end: 20160713
  2. VIEKIRAX [Suspect]
     Active Substance: OMBITASVIR\PARITAPREVIR\RITONAVIR
     Indication: HEPATITIS C
     Route: 048
     Dates: start: 20160421, end: 20160713

REACTIONS (3)
  - Fatigue [Recovering/Resolving]
  - Weight decreased [Recovered/Resolved]
  - Apnoea [Recovered/Resolved with Sequelae]

NARRATIVE: CASE EVENT DATE: 201612
